FAERS Safety Report 16278226 (Version 1)
Quarter: 2019Q2

REPORT INFORMATION
  Report Type: Spontaneous
  Country: IT (occurrence: IT)
  Receive Date: 20190506
  Receipt Date: 20190506
  Transmission Date: 20190711
  Serious: Yes (Other)
  Sender: FDA-Public Use
  Company Number: IT-PFM-2019-04766

PATIENT

DRUGS (2)
  1. ONTRUZANT [Suspect]
     Active Substance: TRASTUZUMAB-DTTB
     Indication: BREAST CANCER
     Dosage: 474 MG, CYCLICAL
     Route: 042
     Dates: start: 20190306, end: 20190327
  2. NAVELBINE [Suspect]
     Active Substance: VINORELBINE TARTRATE
     Indication: BREAST CANCER
     Dosage: 44 MG, CYCLICAL
     Route: 042
     Dates: start: 20190306, end: 20190327

REACTIONS (3)
  - Diarrhoea [Unknown]
  - Xerophthalmia [Unknown]
  - Abdominal pain [Unknown]

NARRATIVE: CASE EVENT DATE: 20190417
